FAERS Safety Report 18143950 (Version 1)
Quarter: 2020Q3

REPORT INFORMATION
  Report Type: Spontaneous
  Country: IT (occurrence: IT)
  Receive Date: 20200813
  Receipt Date: 20200813
  Transmission Date: 20201103
  Serious: Yes (Hospitalization)
  Sender: FDA-Public Use
  Company Number: IT-TEVA-2020-IT-1813124

PATIENT
  Age: 52 Year
  Sex: Female
  Weight: 116 kg

DRUGS (7)
  1. CITALOPRAM [Suspect]
     Active Substance: CITALOPRAM HYDROBROMIDE
     Dosage: 80 MG
     Route: 048
     Dates: start: 20200726, end: 20200726
  2. DELORAZEPAM [Suspect]
     Active Substance: DELORAZEPAM
     Dosage: 8 MG
     Route: 048
     Dates: start: 20200726, end: 20200726
  3. LERCANIDIPINE [Suspect]
     Active Substance: LERCANIDIPINE
     Dosage: 80 MG
     Route: 048
     Dates: start: 20200726, end: 20200726
  4. ARIPIPRAZOLE. [Suspect]
     Active Substance: ARIPIPRAZOLE
     Dosage: 80 MG
     Route: 048
     Dates: start: 20200726, end: 20200726
  5. NEBIVOLOL. [Suspect]
     Active Substance: NEBIVOLOL
     Dosage: 20 MG
     Route: 048
     Dates: start: 20200726, end: 20200726
  6. IRBESARTAN/IDROCLOROTIAZIDE [Suspect]
     Active Substance: HYDROCHLOROTHIAZIDE\IRBESARTAN
     Dosage: 4 DOSAGE FORMS
     Route: 048
     Dates: start: 20200726, end: 20200726
  7. FLURAZEPAM [Suspect]
     Active Substance: FLURAZEPAM HYDROCHLORIDE
     Dosage: 120 MG
     Route: 048
     Dates: start: 20200726, end: 20200726

REACTIONS (4)
  - Hypotension [Recovering/Resolving]
  - Intentional overdose [Recovering/Resolving]
  - Depressed level of consciousness [Recovering/Resolving]
  - Suicide attempt [Recovering/Resolving]

NARRATIVE: CASE EVENT DATE: 20200726
